FAERS Safety Report 15180289 (Version 3)
Quarter: 2018Q4

REPORT INFORMATION
  Report Type: Spontaneous
  Country: US (occurrence: US)
  Receive Date: 20180723
  Receipt Date: 20181115
  Transmission Date: 20190204
  Serious: No
  Sender: FDA-Public Use
  Company Number: US-PFIZER INC-2018294657

PATIENT
  Age: 61 Year
  Sex: Female

DRUGS (1)
  1. XELJANZ XR [Suspect]
     Active Substance: TOFACITINIB CITRATE
     Indication: RHEUMATOID ARTHRITIS
     Dosage: 11 MG, UNK
     Dates: start: 201808, end: 20180921

REACTIONS (3)
  - Headache [Unknown]
  - Myoclonus [Recovering/Resolving]
  - Dry eye [Unknown]

NARRATIVE: CASE EVENT DATE: 2018
